FAERS Safety Report 5926096-3 (Version None)
Quarter: 2008Q4

REPORT INFORMATION
  Report Type: 
  Country: None (occurrence: None)
  Receive Date: 20081016
  Receipt Date: 20081007
  Transmission Date: 20090506
  Serious: Yes (Hospitalization)
  Sender: FDA-Public Use
  Company Number: 2007SP015074

PATIENT
  Age: 72 Year
  Sex: Female
  Weight: 27.2158 kg

DRUGS (1)
  1. TEMOZOLOMIDE [Suspect]
     Indication: GLIOBLASTOMA MULTIFORME
     Dates: start: 20070521, end: 20070527

REACTIONS (6)
  - ASTHENIA [None]
  - COGNITIVE DISORDER [None]
  - CONFUSIONAL STATE [None]
  - INFECTION [None]
  - MEMORY IMPAIRMENT [None]
  - PLATELET COUNT DECREASED [None]
